FAERS Safety Report 12033973 (Version 1)
Quarter: 2016Q1

REPORT INFORMATION
  Report Type: Report from Study
  Country: US (occurrence: US)
  Receive Date: 20160207
  Receipt Date: 20160207
  Transmission Date: 20160526
  Serious: No
  Sender: FDA-Public Use
  Company Number: US-ABBVIE-15K-163-1517744-00

PATIENT
  Age: 41 Year
  Sex: Female

DRUGS (1)
  1. HUMIRA [Suspect]
     Active Substance: ADALIMUMAB
     Indication: PSORIASIS
     Route: 058
     Dates: start: 20151106

REACTIONS (12)
  - Psoriasis [Recovering/Resolving]
  - Anhedonia [Unknown]
  - Rash macular [Not Recovered/Not Resolved]
  - Deformity [Unknown]
  - Nausea [Unknown]
  - Nail psoriasis [Recovering/Resolving]
  - Feeling abnormal [Unknown]
  - Pruritus [Unknown]
  - Affect lability [Unknown]
  - Anger [Unknown]
  - Frustration tolerance decreased [Unknown]
  - Emotional disorder [Unknown]

NARRATIVE: CASE EVENT DATE: 2015
